FAERS Safety Report 17214702 (Version 1)
Quarter: 2019Q4

REPORT INFORMATION
  Report Type: Spontaneous
  Country: US (occurrence: US)
  Receive Date: 20191230
  Receipt Date: 20191230
  Transmission Date: 20200122
  Serious: Yes (Hospitalization, Other)
  Sender: FDA-Public Use
  Company Number: US-SA-2019SA360566

PATIENT
  Age: 55 Year
  Sex: Female

DRUGS (18)
  1. HUMALOG [Concomitant]
     Active Substance: INSULIN LISPRO
  2. WARFARIN SODIUM. [Concomitant]
     Active Substance: WARFARIN SODIUM
  3. INSULIN [Concomitant]
     Active Substance: INSULIN NOS
     Dosage: UNK
  4. CARVEDILOL. [Concomitant]
     Active Substance: CARVEDILOL
  5. METOPROLOL TARTRATE. [Concomitant]
     Active Substance: METOPROLOL TARTRATE
  6. HYDRALAZINE HCL [Concomitant]
     Active Substance: HYDRALAZINE HYDROCHLORIDE
  7. FUROSEMIDE. [Concomitant]
     Active Substance: FUROSEMIDE
  8. ASPIRIN [ACETYLSALICYLIC ACID] [Concomitant]
     Active Substance: ASPIRIN
  9. VITAMIN D [VITAMIN D NOS] [Concomitant]
     Active Substance: VITAMIN D NOS
  10. AMILORIDE HCL [Concomitant]
     Active Substance: AMILORIDE HYDROCHLORIDE
  11. RANITIDINE HCL [Concomitant]
     Active Substance: RANITIDINE HYDROCHLORIDE
  12. DUPIXENT [Suspect]
     Active Substance: DUPILUMAB
     Indication: ASTHMA
     Dosage: 300 MG, QW
     Route: 058
     Dates: start: 20181107
  13. ROSUVASTATIN CALCIUM. [Concomitant]
     Active Substance: ROSUVASTATIN CALCIUM
  14. SPIRONOLACTONE. [Concomitant]
     Active Substance: SPIRONOLACTONE
  15. ISOSORBIDE DINITRATE. [Concomitant]
     Active Substance: ISOSORBIDE DINITRATE
  16. PREDNISONE. [Concomitant]
     Active Substance: PREDNISONE
  17. SERTRALINE HCL [Concomitant]
     Active Substance: SERTRALINE HYDROCHLORIDE
  18. POTASSIUM [Concomitant]
     Active Substance: POTASSIUM

REACTIONS (7)
  - Sinus arrhythmia [Unknown]
  - Product use issue [Unknown]
  - Vomiting [Unknown]
  - Diarrhoea [Unknown]
  - Pain [Unknown]
  - Diverticulitis [Unknown]
  - Dehydration [Unknown]
